FAERS Safety Report 6864540-8 (Version None)
Quarter: 2010Q3

REPORT INFORMATION
  Report Type: 
  Country: None (occurrence: None)
  Receive Date: 20100721
  Receipt Date: 20080414
  Transmission Date: 20110219
  Serious: No
  Sender: FDA-Public Use
  Company Number: US-PFIZER INC-2008029166

PATIENT
  Age: 58 Year
  Sex: Female
  Weight: 57.272 kg

DRUGS (7)
  1. CHANTIX [Suspect]
     Indication: SMOKING CESSATION THERAPY
     Route: 048
     Dates: start: 20070626
  2. LISINOPRIL [Concomitant]
     Indication: CARDIAC FAILURE CONGESTIVE
  3. THEO-24 [Concomitant]
     Indication: CHRONIC OBSTRUCTIVE PULMONARY DISEASE
  4. CARVEDILOL [Concomitant]
     Indication: CARDIAC FAILURE CONGESTIVE
  5. PRAVASTATIN [Concomitant]
  6. ALL OTHER THERAPEUTIC PRODUCTS [Concomitant]
     Indication: CHRONIC OBSTRUCTIVE PULMONARY DISEASE
  7. OXYGEN [Concomitant]
     Indication: CHRONIC OBSTRUCTIVE PULMONARY DISEASE

REACTIONS (1)
  - ABDOMINAL DISCOMFORT [None]
